FAERS Safety Report 17847507 (Version 2)
Quarter: 2020Q2

REPORT INFORMATION
  Report Type: Spontaneous
  Country: IT (occurrence: IT)
  Receive Date: 20200601
  Receipt Date: 20200608
  Transmission Date: 20200714
  Serious: Yes (Life-Threatening, Hospitalization, Other)
  Sender: FDA-Public Use
  Company Number: IT-ASTRAZENECA-2020SE70367

PATIENT
  Age: 27648 Day
  Sex: Male

DRUGS (9)
  1. IMFINZI [Suspect]
     Active Substance: DURVALUMAB
     Indication: NON-SMALL CELL LUNG CANCER STAGE III
     Route: 042
     Dates: start: 20200403
  2. REPAGLINIDE. [Concomitant]
     Active Substance: REPAGLINIDE
  3. CLOPIDOGREL [Concomitant]
     Active Substance: CLOPIDOGREL BISULFATE
  4. LEVEMIR [Concomitant]
     Active Substance: INSULIN DETEMIR
  5. SIMVASTATIN. [Concomitant]
     Active Substance: SIMVASTATIN
  6. HUMALOG [Concomitant]
     Active Substance: INSULIN LISPRO
  7. ESOPRAL [Concomitant]
     Active Substance: ESOMEPRAZOLE
  8. UROREC [Concomitant]
     Active Substance: SILODOSIN
  9. METOFORMIN [Concomitant]
     Active Substance: METFORMIN HYDROCHLORIDE

REACTIONS (5)
  - Bacterial infection [Recovering/Resolving]
  - Respiratory failure [Recovering/Resolving]
  - Myositis [Recovering/Resolving]
  - Renal failure [Recovering/Resolving]
  - Myocarditis [Recovering/Resolving]

NARRATIVE: CASE EVENT DATE: 20200403
